FAERS Safety Report 17764681 (Version 3)
Quarter: 2021Q2

REPORT INFORMATION
  Report Type: Spontaneous
  Country: CA (occurrence: CA)
  Receive Date: 20200511
  Receipt Date: 20210428
  Transmission Date: 20210716
  Serious: Yes (Death, Hospitalization, Other)
  Sender: FDA-Public Use
  Company Number: CA-SAMSUNG BIOEPIS-SB-2020-15112

PATIENT
  Age: 59 Year
  Sex: Male
  Weight: 115 kg

DRUGS (2)
  1. INFLIXIMAB [Suspect]
     Active Substance: INFLIXIMAB
     Indication: RHEUMATOID ARTHRITIS
     Route: 042
  2. PREDNISONE. [Concomitant]
     Active Substance: PREDNISONE
     Indication: PRODUCT USED FOR UNKNOWN INDICATION
     Dosage: UNKNOWN
     Route: 065

REACTIONS (26)
  - Dyspnoea [Fatal]
  - Myocardial infarction [Fatal]
  - Haematoma [Fatal]
  - Off label use [Fatal]
  - Fall [Fatal]
  - Condition aggravated [Fatal]
  - Hypertension [Fatal]
  - Infarction [Fatal]
  - Ligament rupture [Fatal]
  - Arthralgia [Fatal]
  - Malaise [Fatal]
  - Myalgia [Fatal]
  - Bronchitis [Fatal]
  - Oxygen saturation abnormal [Fatal]
  - Weight increased [Fatal]
  - Drug ineffective [Fatal]
  - Heart rate irregular [Fatal]
  - Oedema peripheral [Fatal]
  - Blood pressure fluctuation [Fatal]
  - Heart rate increased [Fatal]
  - Upper limb fracture [Fatal]
  - Face oedema [Fatal]
  - Musculoskeletal pain [Fatal]
  - Pain in extremity [Fatal]
  - Inappropriate schedule of product administration [Fatal]
  - Respiratory rate increased [Fatal]
